FAERS Safety Report 14998817 (Version 2)
Quarter: 2018Q2

REPORT INFORMATION
  Report Type: Report from Study
  Country: None (occurrence: TR)
  Receive Date: 20180612
  Receipt Date: 20180629
  Transmission Date: 20180711
  Serious: Yes (Hospitalization)
  Sender: FDA-Public Use
  Company Number: TR-ABBVIE-18K-161-2382337-00

PATIENT
  Age: 33 Year
  Sex: Female
  Weight: 69 kg

DRUGS (3)
  1. CIPRASID [Concomitant]
     Indication: APPENDICECTOMY
  2. BRUFEN [Concomitant]
     Active Substance: IBUPROFEN
     Indication: APPENDICECTOMY
  3. HUMIRA [Suspect]
     Active Substance: ADALIMUMAB
     Indication: ANKYLOSING SPONDYLITIS
     Route: 058
     Dates: start: 20180524, end: 20180530

REACTIONS (6)
  - Renal impairment [Recovered/Resolved]
  - Nausea [Recovered/Resolved]
  - Nausea [Recovered/Resolved]
  - Groin pain [Recovered/Resolved]
  - Appendicitis [Recovered/Resolved]
  - Abdominal pain [Unknown]

NARRATIVE: CASE EVENT DATE: 20180530
